FAERS Safety Report 7770351-1 (Version None)
Quarter: 2011Q3

REPORT INFORMATION
  Report Type: 
  Country: None (occurrence: None)
  Receive Date: 20110922
  Receipt Date: 20100824
  Transmission Date: 20111222
  Serious: No
  Sender: FDA-Public Use
  Company Number: US-ASTRAZENECA-2008UW04639

PATIENT
  Age: 668 Month
  Sex: Female
  Weight: 83 kg

DRUGS (6)
  1. SEROQUEL [Suspect]
     Route: 048
     Dates: start: 20040101, end: 20041201
  2. SEROQUEL [Suspect]
     Route: 048
     Dates: start: 20040101, end: 20041201
  3. LIPITOR [Concomitant]
     Indication: HYPERLIPIDAEMIA
  4. SEROQUEL [Suspect]
     Indication: DEPRESSION
     Dosage: 300-600 MG
     Route: 048
     Dates: start: 20040101, end: 20070201
  5. SEROQUEL [Suspect]
     Indication: SCHIZOPHRENIA
     Dosage: 300-600 MG
     Route: 048
     Dates: start: 20040101, end: 20070201
  6. LIPITOR [Concomitant]
     Indication: BLOOD CHOLESTEROL INCREASED

REACTIONS (2)
  - TYPE 2 DIABETES MELLITUS [None]
  - DIABETIC COMPLICATION [None]
